FAERS Safety Report 8291850-2 (Version None)
Quarter: 2012Q2

REPORT INFORMATION
  Report Type: 
  Country: None (occurrence: None)
  Receive Date: 20120417
  Receipt Date: 20120410
  Transmission Date: 20120825
  Serious: Yes (Hospitalization)
  Sender: FDA-Public Use
  Company Number: US-ELI_LILLY_AND_COMPANY-US201201007380

PATIENT
  Sex: Female

DRUGS (14)
  1. ASCORBIC ACID [Concomitant]
  2. MULTI-VITAMINS [Concomitant]
  3. FORTEO [Suspect]
     Dosage: 20 UG, QD
  4. ALLEGRA [Concomitant]
  5. TRACLEER [Concomitant]
     Indication: CARDIAC DISORDER
  6. CARBIDOPA AND LEVODOPA [Concomitant]
     Indication: MUSCLE SPASMS
  7. FORADIL [Concomitant]
  8. CALCIUM CARBONATE [Concomitant]
     Dosage: 600 MG, UNK
  9. REVATIO [Concomitant]
     Indication: CARDIAC DISORDER
  10. POTASSIUM [Concomitant]
  11. SINGULAIR [Concomitant]
     Indication: HYPERSENSITIVITY
  12. ALBUTEROL [Concomitant]
  13. ASPIRIN [Concomitant]
  14. FORTEO [Suspect]
     Indication: OSTEOPOROSIS
     Dosage: 20 UG, QD

REACTIONS (7)
  - CARDIAC DISORDER [None]
  - ARRHYTHMIA [None]
  - FATIGUE [None]
  - PNEUMONIA [None]
  - DIZZINESS [None]
  - ASTHENIA [None]
  - PULMONARY OEDEMA [None]
